FAERS Safety Report 7610491-0 (Version None)
Quarter: 2011Q3

REPORT INFORMATION
  Report Type: 
  Country: None (occurrence: None)
  Receive Date: 20110715
  Receipt Date: 20090716
  Transmission Date: 20111222
  Serious: Yes (Death, Other)
  Sender: FDA-Public Use
  Company Number: US-BAYER-200926316NA

PATIENT
  Age: 76 Year
  Sex: Female
  Weight: 192.8 kg

DRUGS (11)
  1. LANOXIN [Concomitant]
     Dosage: 0.25 MG, QD
     Route: 048
  2. ACETYLSALICYLIC ACID SRT [Concomitant]
     Dosage: 81 MG, UNK
     Route: 048
  3. COUMADIN [Concomitant]
     Dosage: 2.5 MG, QD
     Route: 048
  4. CARDIZEM LA [Concomitant]
     Dosage: 240 MG, UNK
     Route: 048
  5. DOPAMINE HCL [Concomitant]
     Dosage: 400 MG, UNK
     Route: 042
     Dates: start: 20050429
  6. TRASYLOL [Suspect]
     Indication: PRODUCT USED FOR UNKNOWN INDICATION
     Dosage: 200 ML LOADING DOSE FOLLOWED BY 50 ML/HOUR INFUSION
     Route: 042
     Dates: start: 20050429, end: 20050429
  7. PLAVIX [Concomitant]
     Dosage: 75 MG, UNK
     Route: 048
  8. FENTANYL [Concomitant]
     Dosage: 2000 MG, UNK
     Route: 042
     Dates: start: 20050429
  9. MANNITOL [Concomitant]
  10. VANCOMYCIN [Concomitant]
     Dosage: 2 G, UNK
     Route: 042
     Dates: start: 20050429
  11. HEPARIN [Concomitant]
     Dosage: 25000 UNITS
     Route: 042
     Dates: start: 20050429

REACTIONS (8)
  - STRESS [None]
  - FEAR [None]
  - PAIN [None]
  - RENAL FAILURE [None]
  - ANXIETY [None]
  - DEATH [None]
  - UNEVALUABLE EVENT [None]
  - EMOTIONAL DISTRESS [None]
